FAERS Safety Report 4468117-3 (Version None)
Quarter: 2004Q4

REPORT INFORMATION
  Report Type: 
  Country: None (occurrence: None)
  Receive Date: 20041006
  Receipt Date: 20040921
  Transmission Date: 20050328
  Serious: Yes (Hospitalization)
  Sender: FDA-Public Use
  Company Number: 2004SE05105

PATIENT
  Age: 90 Year
  Sex: Male

DRUGS (12)
  1. ROSUVASTATIN [Suspect]
     Indication: CARDIAC FAILURE
     Dates: start: 20040805, end: 20040908
  2. ROSUVASTATIN [Suspect]
     Indication: CARDIAC FAILURE
     Dates: start: 20040916
  3. CONCOR [Concomitant]
  4. DELIX [Concomitant]
  5. DIGITOXIN [Concomitant]
  6. ACETYLSALICYLIC ACID [Concomitant]
  7. BRONCHORETARD [Concomitant]
  8. ACC [Concomitant]
  9. ALNA [Concomitant]
  10. PANTOPRAZOLE SODIUM [Concomitant]
  11. NIFURANTIN [Concomitant]
  12. FURORESE [Concomitant]

REACTIONS (3)
  - HEMIPARESIS [None]
  - ISCHAEMIC STROKE [None]
  - TREATMENT NONCOMPLIANCE [None]
